FAERS Safety Report 7033227-3 (Version None)
Quarter: 2010Q4

REPORT INFORMATION
  Report Type: 
  Country: None (occurrence: None)
  Receive Date: 20101007
  Receipt Date: 20100927
  Transmission Date: 20110411
  Serious: Yes (Hospitalization)
  Sender: FDA-Public Use
  Company Number: PT-JNJFOC-20100507629

PATIENT
  Sex: Male
  Weight: 70 kg

DRUGS (2)
  1. STELARA [Suspect]
     Indication: PSORIASIS
     Route: 058
     Dates: start: 20100412, end: 20100510
  2. STELARA [Suspect]
     Route: 058
     Dates: start: 20100412, end: 20100510

REACTIONS (1)
  - ERYSIPELAS [None]
